FAERS Safety Report 12332026 (Version 1)
Quarter: 2016Q2

REPORT INFORMATION
  Report Type: Spontaneous
  Country: US (occurrence: US)
  Receive Date: 20160504
  Receipt Date: 20160504
  Transmission Date: 20160815
  Serious: No
  Sender: FDA-Public Use
  Company Number: US-PFIZER INC-2016229155

PATIENT
  Age: 62 Year
  Sex: Female
  Weight: 67 kg

DRUGS (1)
  1. LYRICA [Suspect]
     Active Substance: PREGABALIN
     Indication: NEUROPATHY PERIPHERAL
     Dosage: 75 MG, 3X/DAY

REACTIONS (3)
  - Somnolence [Unknown]
  - Pain [Not Recovered/Not Resolved]
  - Insomnia [Unknown]
